FAERS Safety Report 17471634 (Version 1)
Quarter: 2020Q1

REPORT INFORMATION
  Report Type: Spontaneous
  Country: US (occurrence: US)
  Receive Date: 20200228
  Receipt Date: 20200228
  Transmission Date: 20200409
  Serious: No
  Sender: FDA-Public Use
  Company Number: US-JNJFOC-20200216857

PATIENT
  Sex: Female
  Weight: 79.45 kg

DRUGS (1)
  1. MOTRIN IB [Suspect]
     Active Substance: IBUPROFEN
     Indication: ARTHRITIS
     Dosage: 2 PILLS TWO OR THREE TIMES A WEEK
     Route: 048

REACTIONS (1)
  - Inappropriate schedule of product administration [Unknown]
